FAERS Safety Report 9800705 (Version 1)
Quarter: 2014Q1

REPORT INFORMATION
  Report Type: Spontaneous
  Country: US (occurrence: US)
  Receive Date: 20140107
  Receipt Date: 20140107
  Transmission Date: 20141002
  Serious: No
  Sender: FDA-Public Use
  Company Number: US-009507513-1312USA009492

PATIENT
  Age: 61 Year
  Sex: Male

DRUGS (10)
  1. VYTORIN [Suspect]
     Indication: BLOOD CHOLESTEROL ABNORMAL
     Dosage: 10/20 MG, QD
     Route: 048
     Dates: start: 2013, end: 2013
  2. VYTORIN [Suspect]
     Dosage: 10/20 MG, QD
     Route: 048
     Dates: start: 2013, end: 2013
  3. IMDUR [Concomitant]
     Dosage: UNK
     Route: 048
  4. TRAZODONE HYDROCHLORIDE [Concomitant]
     Dosage: UNK
  5. XANAX [Concomitant]
     Dosage: UNK
  6. WELLBUTRIN [Concomitant]
     Dosage: UNK
  7. PLAVIX [Concomitant]
  8. BYSTOLIC [Concomitant]
     Dosage: UNK
  9. ASPIRIN [Concomitant]
     Dosage: UNK
     Route: 048
  10. NEXIUM [Concomitant]
     Route: 048

REACTIONS (2)
  - Pain [Recovered/Resolved]
  - Pain [Recovered/Resolved]
